FAERS Safety Report 6290624-1 (Version None)
Quarter: 2009Q3

REPORT INFORMATION
  Report Type: 
  Country: None (occurrence: None)
  Receive Date: 20090728
  Receipt Date: 20090728
  Transmission Date: 20100115
  Serious: No
  Sender: FDA-Public Use
  Company Number: None

PATIENT
  Age: 50 Year
  Sex: Female
  Weight: 103.8737 kg

DRUGS (1)
  1. SULFASALAZINE [Suspect]
     Indication: ARTHRITIS
     Dosage: 2 BID PO
     Route: 048

REACTIONS (2)
  - HALLUCINATION, AUDITORY [None]
  - NIGHTMARE [None]
